FAERS Safety Report 4475336-9 (Version None)
Quarter: 2004Q4

REPORT INFORMATION
  Report Type: 
  Country: None (occurrence: None)
  Receive Date: 20041013
  Receipt Date: 20041013
  Transmission Date: 20050328
  Serious: Yes (Hospitalization, Other)
  Sender: FDA-Public Use
  Company Number: None

PATIENT
  Age: 60 Year
  Sex: Male

DRUGS (8)
  1. METRONIDAZOLE [Suspect]
     Indication: CLOSTRIDIUM COLITIS
     Dosage: 500 MG PO TID
     Route: 048
  2. FLOMAX [Concomitant]
  3. LISINOPRIL [Concomitant]
  4. NITROGLYCERIN [Concomitant]
  5. FLAGYL [Concomitant]
  6. ADVAIR DISKUS 100/50 [Concomitant]
  7. AMIODARONE [Concomitant]
  8. COREG [Concomitant]

REACTIONS (5)
  - AGITATION [None]
  - CONFUSIONAL STATE [None]
  - DELIRIUM [None]
  - HALLUCINATION [None]
  - SPEECH DISORDER [None]
